FAERS Safety Report 15228684 (Version 1)
Quarter: 2018Q3

REPORT INFORMATION
  Report Type: Other
  Country: US (occurrence: US)
  Receive Date: 20180801
  Receipt Date: 20180801
  Transmission Date: 20181010
  Serious: Yes (Life-Threatening, Hospitalization, Other)
  Sender: FDA-Public Use
  Company Number: US-C B FLEET CO INC-201807-US-001661

PATIENT
  Age: 64 Year
  Sex: Male

DRUGS (1)
  1. MINERAL OIL. [Suspect]
     Active Substance: MINERAL OIL
     Indication: CONSTIPATION
     Dosage: UNKNOWN
     Route: 048

REACTIONS (6)
  - Chills [Recovering/Resolving]
  - Syncope [Recovering/Resolving]
  - Productive cough [Recovering/Resolving]
  - Pneumonia lipoid [Recovering/Resolving]
  - Hypoxia [Recovering/Resolving]
  - Dyspnoea [Recovered/Resolved]
